FAERS Safety Report 6569280-0 (Version None)
Quarter: 2010Q1

REPORT INFORMATION
  Report Type: 
  Country: None (occurrence: None)
  Receive Date: 20100201
  Receipt Date: 20100201
  Transmission Date: 20100710
  Serious: Yes (Other)
  Sender: FDA-Public Use
  Company Number: None

PATIENT
  Age: 31 Year
  Sex: Female

DRUGS (1)
  1. MIRENA [Suspect]

REACTIONS (5)
  - ECONOMIC PROBLEM [None]
  - ERYTHEMA NODOSUM [None]
  - INFECTION [None]
  - OEDEMA PERIPHERAL [None]
  - WEIGHT BEARING DIFFICULTY [None]
